FAERS Safety Report 5855873-2 (Version None)
Quarter: 2008Q3

REPORT INFORMATION
  Report Type: 
  Country: None (occurrence: None)
  Receive Date: 20080821
  Receipt Date: 20080821
  Transmission Date: 20090109
  Serious: Yes (Hospitalization)
  Sender: FDA-Public Use
  Company Number: None

PATIENT
  Age: 44 Year
  Sex: Female
  Weight: 90.7194 kg

DRUGS (1)
  1. BOTOX COSMETIC [Suspect]
     Indication: SKIN COSMETIC PROCEDURE
     Dosage: 39 CC
     Dates: start: 20080625, end: 20080820

REACTIONS (2)
  - ANXIETY [None]
  - INFLUENZA [None]
